FAERS Safety Report 16234074 (Version 1)
Quarter: 2019Q2

REPORT INFORMATION
  Report Type: Report from Study
  Country: KR (occurrence: KR)
  Receive Date: 20190424
  Receipt Date: 20190424
  Transmission Date: 20190711
  Serious: Yes (Other)
  Sender: FDA-Public Use
  Company Number: KR-DSJP-DSJ-2019-114317AA

PATIENT

DRUGS (8)
  1. TAMBOCOR [Concomitant]
     Active Substance: FLECAINIDE ACETATE
     Indication: ATRIAL FIBRILLATION
     Dosage: 50 MG, BID
     Route: 048
     Dates: start: 20110107
  2. TORSEM [Concomitant]
     Indication: OEDEMA
     Dosage: 5 MG, QD
     Route: 048
     Dates: start: 20150921
  3. GANATON [Concomitant]
     Active Substance: ITOPRIDE
     Indication: GASTROINTESTINAL DISORDER PROPHYLAXIS
     Dosage: 50 MG, BID
     Route: 048
     Dates: start: 20150427
  4. KERLONE [Concomitant]
     Active Substance: BETAXOLOL HYDROCHLORIDE
     Indication: ANGINA PECTORIS
     Dosage: 10 MG, QD
     Route: 048
     Dates: start: 20101203
  5. EDOXABAN [Suspect]
     Active Substance: EDOXABAN TOSYLATE
     Indication: PRODUCT USED FOR UNKNOWN INDICATION
     Dosage: 30 MG, QD
     Route: 065
     Dates: start: 20170911
  6. BRVIX [Concomitant]
     Active Substance: CLOPIDOGREL CAMSYLATE
     Indication: ATRIAL FIBRILLATION
     Dosage: 75 MG, QD
     Route: 048
     Dates: start: 20111123, end: 20170910
  7. KANARB [Concomitant]
     Indication: HYPERTENSION
     Dosage: 30 MG, QD
     Route: 048
     Dates: start: 20150921
  8. APLACE [Concomitant]
     Active Substance: TROXIPIDE
     Indication: ANTACID THERAPY
     Dosage: 100 MG, BID
     Route: 048
     Dates: start: 20090602

REACTIONS (1)
  - Chest pain [Recovered/Resolved]

NARRATIVE: CASE EVENT DATE: 20180506
